FAERS Safety Report 9261398 (Version 1)
Quarter: 2013Q2

REPORT INFORMATION
  Report Type: Spontaneous
  Country: BR (occurrence: BR)
  Receive Date: 20130429
  Receipt Date: 20130429
  Transmission Date: 20140414
  Serious: Yes (Death)
  Sender: FDA-Public Use
  Company Number: BR-AMGEN-BRASP2013029196

PATIENT
  Age: 79 Year
  Sex: Male
  Weight: 50 kg

DRUGS (4)
  1. ENBREL [Suspect]
     Indication: PSORIASIS
     Dosage: 25 MG, 2X/WEEK
     Route: 058
     Dates: start: 2008
  2. ENALAPRIL [Concomitant]
     Dosage: UNK UNK, UNK
  3. HYDROCHLOROTHIAZIDE [Concomitant]
     Dosage: UNK UNK, UNK
  4. AAS [Concomitant]
     Dosage: UNK UNK, UNK

REACTIONS (1)
  - Emphysema [Fatal]
